FAERS Safety Report 14503245 (Version 1)
Quarter: 2018Q1

REPORT INFORMATION
  Report Type: Report from Study
  Country: US (occurrence: US)
  Receive Date: 20180208
  Receipt Date: 20180208
  Transmission Date: 20180509
  Serious: Yes (Other)
  Sender: FDA-Public Use
  Company Number: US-ROCHE-2064279

PATIENT
  Age: 69 Year
  Sex: Female
  Weight: 72.64 kg

DRUGS (1)
  1. ERIVEDGE [Suspect]
     Active Substance: VISMODEGIB
     Indication: NEOPLASM MALIGNANT
     Dosage: 150MG ONCE A DAY ;ONGOING: YES
     Route: 048
     Dates: start: 201711

REACTIONS (6)
  - Decreased appetite [Not Recovered/Not Resolved]
  - Ageusia [Not Recovered/Not Resolved]
  - Visual impairment [Unknown]
  - Arthralgia [Unknown]
  - Muscle contractions involuntary [Unknown]
  - Paralysis [Unknown]

NARRATIVE: CASE EVENT DATE: 201801
